FAERS Safety Report 8814649 (Version 2)
Quarter: 2012Q4

REPORT INFORMATION
  Report Type: 
  Country: US (occurrence: US)
  Receive Date: 20120928
  Receipt Date: 20121009
  Transmission Date: 20130627
  Serious: Yes (Death, Hospitalization)
  Sender: FDA-Public Use
  Company Number: US-ACTELION-A-US2012-71694

PATIENT
  Age: 68 Year
  Sex: Female

DRUGS (3)
  1. VELETRI [Suspect]
     Indication: PULMONARY ARTERIAL HYPERTENSION
     Dosage: 23 ng/kg, per min
     Route: 042
  2. VELETRI [Suspect]
     Dosage: 19.5 ng/kg, per min
     Route: 042
     Dates: start: 20120313
  3. COUMADIN [Concomitant]

REACTIONS (5)
  - Respiratory failure [Fatal]
  - Pulmonary fibrosis [Fatal]
  - Head and neck cancer [Fatal]
  - Dysphagia [Fatal]
  - Pain [Fatal]
